FAERS Safety Report 12755133 (Version 2)
Quarter: 2016Q4

REPORT INFORMATION
  Report Type: Report from Study
  Country: US (occurrence: US)
  Receive Date: 20160916
  Receipt Date: 20161018
  Transmission Date: 20170207
  Serious: No
  Sender: FDA-Public Use
  Company Number: PHEH2016US023596

PATIENT
  Sex: Male
  Weight: 26.9 kg

DRUGS (1)
  1. ILARIS [Suspect]
     Active Substance: CANAKINUMAB
     Indication: RHEUMATOID ARTHRITIS
     Dosage: 0.7 ML/105 MG
     Route: 058
     Dates: start: 20160908

REACTIONS (1)
  - Product use issue [Unknown]
